FAERS Safety Report 9067604 (Version 1)
Quarter: 2013Q1

REPORT INFORMATION
  Report Type: Report from Study
  Country: US (occurrence: US)
  Receive Date: 20130131
  Receipt Date: 20130131
  Transmission Date: 20140127
  Serious: No
  Sender: FDA-Public Use
  Company Number: US-ABBOTT-12P-163-1007964-00

PATIENT
  Age: 67 Year
  Sex: Male

DRUGS (9)
  1. HUMIRA [Suspect]
     Indication: PSORIATIC ARTHROPATHY
     Dates: start: 201004
  2. CELEBREX [Concomitant]
     Indication: PRODUCT USED FOR UNKNOWN INDICATION
     Dosage: 200MG DAILY
  3. ASPIRIN [Concomitant]
     Indication: PRODUCT USED FOR UNKNOWN INDICATION
     Dosage: 81MG DAILY
  4. VYTORIN [Concomitant]
     Indication: PRODUCT USED FOR UNKNOWN INDICATION
     Dosage: 1 TABLET DAILY
  5. FEXOFENADINE [Concomitant]
     Indication: HYPERSENSITIVITY
     Dosage: 1 TABLET DAILY
  6. SINGULAIR [Concomitant]
     Indication: HYPERSENSITIVITY
  7. RAMIPRIL [Concomitant]
     Indication: CARDIOVASCULAR EVENT PROPHYLAXIS
  8. FOLTX [Concomitant]
     Indication: CARDIOVASCULAR EVENT PROPHYLAXIS
     Dosage: 1 TABLET DAILY
  9. BISOPR/HCTZ [Concomitant]
     Indication: DIURETIC THERAPY

REACTIONS (4)
  - Renal cyst [Recovered/Resolved]
  - Pancreatic cyst [Recovered/Resolved]
  - Back pain [Recovered/Resolved]
  - Infection [Recovered/Resolved]
